FAERS Safety Report 9762871 (Version 2)
Quarter: 2014Q1

REPORT INFORMATION
  Report Type: Spontaneous
  Country: US (occurrence: US)
  Receive Date: 20131216
  Receipt Date: 20140109
  Transmission Date: 20141002
  Serious: Yes (Death, Hospitalization, Other)
  Sender: FDA-Public Use
  Company Number: US-BAXTER-2013BAX050397

PATIENT
  Sex: 0

DRUGS (1)
  1. DIANEAL PD2 [Suspect]
     Indication: PERITONEAL DIALYSIS
     Dosage: 2 BAGS
     Route: 033

REACTIONS (5)
  - Death [Fatal]
  - Transient ischaemic attack [Unknown]
  - Neoplasm malignant [Unknown]
  - General physical health deterioration [Unknown]
  - Peritonitis [Recovering/Resolving]
